FAERS Safety Report 9964409 (Version 2)
Quarter: 2014Q1

REPORT INFORMATION
  Report Type: Spontaneous
  Country: US (occurrence: US)
  Receive Date: 20140305
  Receipt Date: 20140305
  Transmission Date: 20141002
  Serious: Yes (Other)
  Sender: FDA-Public Use
  Company Number: PHHY2014US004901

PATIENT
  Sex: Female

DRUGS (4)
  1. LIORESAL INTRATECAL [Suspect]
     Indication: MUSCLE SPASTICITY
     Dosage: 340 UG/ DAY
     Route: 037
     Dates: start: 2003
  2. CHLORPHENIRAMINE MALEATE E.R. CAPSULES [Suspect]
     Dosage: UNK UKN, UNK
  3. DITROPAN [Suspect]
     Dosage: UNK UKN, UNK
  4. VITAMIN D3 [Suspect]
     Dosage: UNK UKN, UNK

REACTIONS (3)
  - Muscle spasticity [Unknown]
  - Therapeutic response decreased [Unknown]
  - Implant site scar [Unknown]
